FAERS Safety Report 6603040-7 (Version None)
Quarter: 2010Q1

REPORT INFORMATION
  Report Type: 
  Country: None (occurrence: None)
  Receive Date: 20100226
  Receipt Date: 20100217
  Transmission Date: 20100710
  Serious: Yes (Other)
  Sender: FDA-Public Use
  Company Number: CA-BRISTOL-MYERS SQUIBB COMPANY-14618227

PATIENT
  Age: 61 Year
  Sex: Female

DRUGS (16)
  1. ORENCIA [Suspect]
     Indication: RHEUMATOID ARTHRITIS
     Dosage: 11,25AUG8,22SP,18NV,15DEC08.12JAN09,9FEB,9MR,6AP,4MAY,4,29JUN,27JUL,24AUG,28SP,26OT.INF-17 DURT:Q4
     Route: 042
     Dates: start: 20080728
  2. SALAZOPYRIN [Concomitant]
  3. METHOTREXATE [Concomitant]
  4. ALBUTEROL [Concomitant]
  5. CLONAZEPAM [Concomitant]
     Dosage: 1DF-0.05 UNITS NOT MENTIONED
  6. SERTRALINE HCL [Concomitant]
  7. ADVAIR DISKUS 100/50 [Concomitant]
  8. APO-FOLIC [Concomitant]
  9. ACCOLATE [Concomitant]
  10. NICODERM [Concomitant]
  11. NISTATINA [Concomitant]
     Dosage: 1DF-100,000 UI
  12. HYDROXYCHLOROQUINE SULFATE [Concomitant]
  13. ARIMIDEX [Concomitant]
  14. SPIRIVA [Concomitant]
  15. GABAPENTIN [Concomitant]
  16. PRAVASTATIN SODIUM [Concomitant]

REACTIONS (3)
  - BRONCHITIS [None]
  - IMMUNODEFICIENCY [None]
  - RESPIRATORY TRACT INFECTION [None]
